FAERS Safety Report 12954706 (Version 1)
Quarter: 2016Q4

REPORT INFORMATION
  Report Type: Spontaneous
  Country: US (occurrence: US)
  Receive Date: 20161118
  Receipt Date: 20161118
  Transmission Date: 20170207
  Serious: Yes (Other)
  Sender: FDA-Public Use
  Company Number: US-ASTRAZENECA-2016SF21007

PATIENT
  Sex: Female

DRUGS (2)
  1. BRILINTA [Suspect]
     Active Substance: TICAGRELOR
     Indication: MYOCARDIAL INFARCTION
     Route: 048
     Dates: start: 20160918
  2. OTHER UNKNOWN MULTIPLE OTHER MEDICATIONS. [Concomitant]

REACTIONS (3)
  - Dyspnoea [Unknown]
  - Malaise [Unknown]
  - Bradycardia [Unknown]
